FAERS Safety Report 9389009 (Version 4)
Quarter: 2013Q3

REPORT INFORMATION
  Report Type: Spontaneous
  Country: US (occurrence: US)
  Receive Date: 20130708
  Receipt Date: 20130909
  Transmission Date: 20140515
  Serious: Yes (Death, Other)
  Sender: FDA-Public Use
  Company Number: US-PFIZER INC-2013200206

PATIENT
  Age: 55 Year
  Sex: Male
  Weight: 44.4 kg

DRUGS (8)
  1. DILANTIN [Suspect]
     Indication: CONVULSION
     Dosage: ONE CAPSULE IN MORNING AND TWO CAPSULES AT NIGHT
     Route: 048
  2. LISINOPRIL [Concomitant]
     Dosage: UNK
  3. CITALOPRAM [Concomitant]
     Dosage: UNK
  4. VENTOLIN [Concomitant]
     Dosage: UNK
  5. LEVOTHYROXINE [Concomitant]
     Dosage: 75 UG, UNK
  6. KLOR-CON [Concomitant]
     Dosage: UNK
  7. TAMSULOSIN [Concomitant]
     Indication: DYSPNOEA
     Dosage: 0.4 MG, UNK
  8. ZOCOR [Concomitant]
     Dosage: 20 MG, UNK

REACTIONS (2)
  - Death [Fatal]
  - Chronic obstructive pulmonary disease [Unknown]
